FAERS Safety Report 5395247-4 (Version None)
Quarter: 2007Q3

REPORT INFORMATION
  Report Type: 
  Country: None (occurrence: None)
  Receive Date: 20070713
  Receipt Date: 20070418
  Transmission Date: 20080115
  Serious: Yes (Hospitalization)
  Sender: FDA-Public Use
  Company Number: US-JNJFOC-20061101267

PATIENT
  Age: 26 Year
  Sex: Female
  Weight: 77.7 kg

DRUGS (3)
  1. ORTHO EVRA [Suspect]
     Indication: DRUG USE FOR UNKNOWN INDICATION
     Dosage: TRANSDERMAL
     Route: 062
     Dates: start: 20030901
  2. EPHEDRINE SUL CAP [Concomitant]
  3. IRON (IRON) [Concomitant]

REACTIONS (1)
  - PULMONARY EMBOLISM [None]
